FAERS Safety Report 8270440-1 (Version None)
Quarter: 2012Q2

REPORT INFORMATION
  Report Type: 
  Country: None (occurrence: None)
  Receive Date: 20120410
  Receipt Date: 20120330
  Transmission Date: 20120825
  Serious: Yes (Hospitalization)
  Sender: FDA-Public Use
  Company Number: SE-SANOFI-AVENTIS-2011SA052237

PATIENT
  Age: 60 Year
  Sex: Male

DRUGS (28)
  1. FUROSEMIDE [Concomitant]
     Dates: start: 20110711
  2. HEPARIN [Concomitant]
     Dates: start: 20110824, end: 20110826
  3. DALTEPARIN SODIUM [Concomitant]
     Dosage: DOSE:15000 UNIT(S)
     Dates: start: 20110711, end: 20110903
  4. PRIMPERAN TAB [Concomitant]
     Dates: start: 20110812, end: 20110818
  5. CLOPIDOGREL BISULFATE [Suspect]
     Route: 065
     Dates: start: 20110414, end: 20110711
  6. SPIRONOLACTONE [Concomitant]
     Dates: start: 20110713, end: 20110903
  7. IMPORTAL [Concomitant]
     Dates: start: 20110726, end: 20110903
  8. HMG COA REDUCTASE INHIBITORS [Concomitant]
  9. PLATELET AGGREGATION INHIBITORS [Concomitant]
  10. FRAGMIN [Concomitant]
     Dates: start: 20110826, end: 20110903
  11. OMEPRAZOLE [Concomitant]
     Dates: start: 20110716, end: 20110903
  12. SODIUM PICOSULFATE [Concomitant]
     Dates: start: 20110712, end: 20110725
  13. MORPHINE [Concomitant]
     Dates: start: 20110830, end: 20110903
  14. ETHYLMORPHINE [Concomitant]
     Dates: start: 20110811, end: 20110817
  15. OXYCONTIN [Concomitant]
     Dates: start: 20110711, end: 20110903
  16. ASPIRIN [Concomitant]
     Dates: end: 20110721
  17. BETA BLOCKING AGENTS [Concomitant]
  18. PRIMPERAN TAB [Concomitant]
     Dates: start: 20110823, end: 20110903
  19. FUROSEMIDE [Concomitant]
     Dates: start: 20110822, end: 20110903
  20. ASPIRIN [Concomitant]
     Dosage: LESS TAN EQUAL TO 100 MG
     Dates: start: 20110414, end: 20110704
  21. LACTULOSE [Concomitant]
     Dates: start: 20110720, end: 20110725
  22. ANGIOTENSIN II ANTAGONISTS [Concomitant]
  23. PROPRANOLOL [Concomitant]
     Dates: start: 20110811, end: 20110827
  24. NOVORAPID [Concomitant]
     Dates: start: 20110711, end: 20110719
  25. METFORMIN HCL [Concomitant]
     Dates: end: 20110711
  26. NOSKAPIN [Concomitant]
     Dates: start: 20110813, end: 20110818
  27. CLOPIDOGREL BISULFATE [Suspect]
     Route: 065
     Dates: end: 20110903
  28. INSULATARD NPH HUMAN [Concomitant]
     Dates: start: 20110718, end: 20110903

REACTIONS (25)
  - ALANINE AMINOTRANSFERASE INCREASED [None]
  - DYSPHAGIA [None]
  - SUDDEN DEATH [None]
  - PULMONARY EMBOLISM [None]
  - PORTAL VEIN THROMBOSIS [None]
  - GASTROINTESTINAL DISORDER [None]
  - HEPATIC CIRRHOSIS [None]
  - GASTRIC VARICES [None]
  - HERNIA REPAIR [None]
  - ABDOMINAL PAIN [None]
  - BLOOD URINE PRESENT [None]
  - ASCITES [None]
  - BLOOD ALKALINE PHOSPHATASE INCREASED [None]
  - LIVER DISORDER [None]
  - CONSTIPATION [None]
  - ALCOHOL USE [None]
  - DEHYDRATION [None]
  - PORTAL HYPERTENSION [None]
  - ARRHYTHMIA [None]
  - ASPARTATE AMINOTRANSFERASE INCREASED [None]
  - HAEMATURIA [None]
  - CARDIOVASCULAR DISORDER [None]
  - DILATATION VENTRICULAR [None]
  - NAUSEA [None]
  - COUGH [None]
